FAERS Safety Report 9687633 (Version 1)
Quarter: 2013Q4

REPORT INFORMATION
  Report Type: Spontaneous
  Country: GR (occurrence: GR)
  Receive Date: 20131114
  Receipt Date: 20131114
  Transmission Date: 20140711
  Serious: Yes (Hospitalization)
  Sender: FDA-Public Use
  Company Number: GR-ASTRAZENECA-2013SE81825

PATIENT
  Age: 75 Year
  Sex: Male

DRUGS (3)
  1. BRILIQUE [Suspect]
     Indication: ACUTE CORONARY SYNDROME
     Route: 048
     Dates: start: 20131030, end: 20131105
  2. B-BLOCKER [Concomitant]
     Route: 048
  3. ANGIOTENSIN CONVERTING ENZYME INHIBITORS [Concomitant]
     Indication: HYPERTENSION
     Route: 048

REACTIONS (2)
  - Haematocrit decreased [Recovered/Resolved]
  - Blood urine present [Recovering/Resolving]
